FAERS Safety Report 19924208 (Version 1)
Quarter: 2021Q4

REPORT INFORMATION
  Report Type: Spontaneous
  Country: US (occurrence: US)
  Receive Date: 20211006
  Receipt Date: 20211006
  Transmission Date: 20220303
  Serious: No
  Sender: FDA-Public Use
  Company Number: US-BAYER-2021A220820

PATIENT
  Age: 55 Year
  Sex: Female

DRUGS (3)
  1. ALEVE [Suspect]
     Active Substance: NAPROXEN SODIUM
     Indication: Headache
     Dosage: 5 DF, QD
     Route: 048
     Dates: start: 20210929
  2. ALEVE [Suspect]
     Active Substance: NAPROXEN SODIUM
     Indication: Neck pain
  3. ALEVE [Suspect]
     Active Substance: NAPROXEN SODIUM
     Indication: Headache

REACTIONS (2)
  - Incorrect dose administered [Unknown]
  - Product size issue [Unknown]
